FAERS Safety Report 16060851 (Version 1)
Quarter: 2019Q1

REPORT INFORMATION
  Report Type: Spontaneous
  Country: US (occurrence: US)
  Receive Date: 20190211
  Receipt Date: 20190211
  Transmission Date: 20190418
  Serious: Yes (Disabling, Other)
  Sender: FDA-Public Use
  Company Number: None

PATIENT
  Age: 74 Year
  Sex: Female
  Weight: 78.75 kg

DRUGS (3)
  1. SYNTHROID [Concomitant]
     Active Substance: LEVOTHYROXINE SODIUM
  2. HYDRALAZINE 25MG [Suspect]
     Active Substance: HYDRALAZINE HYDROCHLORIDE
     Indication: HYPERTENSION
     Dosage: ?          QUANTITY:270 TABLET(S);?
     Route: 048
  3. NIFEDIPINE. [Suspect]
     Active Substance: NIFEDIPINE
     Indication: HYPERTENSION
     Dosage: ?          QUANTITY:50 TABLET(S);?
     Route: 048
     Dates: start: 20140424, end: 20190211

REACTIONS (6)
  - Drug ineffective [None]
  - Gait disturbance [None]
  - Dyspnoea [None]
  - Pain [None]
  - Pollakiuria [None]
  - Fall [None]

NARRATIVE: CASE EVENT DATE: 20190211
